FAERS Safety Report 22118528 (Version 4)
Quarter: 2024Q4

REPORT INFORMATION
  Report Type: Spontaneous
  Country: PK (occurrence: PK)
  Receive Date: 20230321
  Receipt Date: 20241007
  Transmission Date: 20250115
  Serious: Yes (Other)
  Sender: AMGEN
  Company Number: PK-PFIZER INC-202101213367

PATIENT
  Age: 18 Year
  Sex: Female

DRUGS (11)
  1. ENBREL [Suspect]
     Active Substance: ETANERCEPT
     Indication: Juvenile idiopathic arthritis
     Dosage: 50 MG, WEEKLY
     Route: 058
     Dates: start: 20210915
  2. ENBREL [Suspect]
     Active Substance: ETANERCEPT
     Indication: Polyarthritis
     Dosage: UNK
     Route: 065
  3. CYTOTREXATE [Concomitant]
     Dosage: 2.5 MG 2 ON EVERY SATURDAY; 2 ON EVERY SUNDAY; 2 HOURS AFTER BREAKFAST
  4. CYTOTREXATE [Concomitant]
     Dosage: 2.5 MG, 3 ON EVERY SATURDAY, 3 ON EVERY SUNDAY, 2 HOURS AFTER BREAKFAST
  5. CYTOTREXATE [Concomitant]
     Dosage: 2.5 MG 4 ON EVERY SATURDAY; 4 ON EVERY SUNDAY; 2 HOURS AFTER BREAKFAST
  6. FOLIC ACID [Concomitant]
     Active Substance: FOLIC ACID
     Indication: Product used for unknown indication
     Dosage: 5 MG 1 ON EVERY MONDAY AND TUESDAY
     Route: 065
  7. DELTACORTRIL [Concomitant]
     Active Substance: PREDNISOLONE
     Dosage: 4 MG 1+0+0 AFTER BREAKFAST
  8. DELTACORTRIL [Concomitant]
     Active Substance: PREDNISOLONE
     Dosage: 5 MG, 1/2 AFTER BREAKFAST, DAILY
  9. NAPROXEN [Concomitant]
     Active Substance: NAPROXEN
     Indication: Pain
     Dosage: 250 MG 1+1 AFTER MEAL FOR WEEK, THEN WHEN FELL PAIN
  10. NAPROXEN [Concomitant]
     Active Substance: NAPROXEN
     Dosage: 250 MG, 1 + 1 AFTER MEALS FOR 2 WEEKS, THEN 1 + 0 DAILY FOR 1 WEEK, THEN WHEN FEEL PAIN
  11. NAPROXEN [Concomitant]
     Active Substance: NAPROXEN
     Dosage: 250 MG, IN CASE OF SEVERE PAIN

REACTIONS (9)
  - Glaucoma [Unknown]
  - Arthropathy [Not Recovered/Not Resolved]
  - Musculoskeletal stiffness [Not Recovered/Not Resolved]
  - Pain [Unknown]
  - Disease recurrence [Unknown]
  - Swelling [Unknown]
  - Arthralgia [Unknown]
  - Joint swelling [Unknown]
  - Off label use [Unknown]
